FAERS Safety Report 7465147-4 (Version None)
Quarter: 2011Q2

REPORT INFORMATION
  Report Type: 
  Country: None (occurrence: None)
  Receive Date: 20110509
  Receipt Date: 20110428
  Transmission Date: 20111010
  Serious: Yes (Life-Threatening, Other)
  Sender: FDA-Public Use
  Company Number: JP-JNJFOC-20110501282

PATIENT
  Sex: Female

DRUGS (9)
  1. TOPIRAMATE [Suspect]
     Route: 048
  2. TOPIRAMATE [Suspect]
     Indication: EPILEPSY
     Route: 048
  3. TOPIRAMATE [Suspect]
     Route: 048
  4. TOPIRAMATE [Suspect]
     Route: 048
  5. MYSTAN [Concomitant]
     Indication: EPILEPSY
     Route: 048
  6. TOPIRAMATE [Suspect]
     Route: 048
  7. TOPIRAMATE [Suspect]
     Route: 048
  8. VALPROIC ACID [Concomitant]
     Indication: EPILEPSY
     Route: 048
  9. TOPIRAMATE [Suspect]
     Route: 048

REACTIONS (2)
  - ANXIETY [None]
  - COMPUTERISED TOMOGRAM ABNORMAL [None]
